FAERS Safety Report 24679944 (Version 1)
Quarter: 2024Q4

REPORT INFORMATION
  Report Type: Spontaneous
  Country: CN (occurrence: CN)
  Receive Date: 20241129
  Receipt Date: 20241129
  Transmission Date: 20250114
  Serious: Yes (Hospitalization, Other)
  Sender: BAXTER
  Company Number: None

PATIENT
  Age: 49 Year
  Sex: Female
  Weight: 55 kg

DRUGS (9)
  1. CYCLOPHOSPHAMIDE [Suspect]
     Active Substance: CYCLOPHOSPHAMIDE
     Indication: Rhabdomyosarcoma
     Dosage: 1.4 G, ONE TIME IN ONE DAY, DILUTED WITH 500 ML OF 0.9% SODIUM CHLORIDE, MULTIPLE CYCLES OF CHEMOTHE
     Route: 041
     Dates: start: 20240930, end: 20240930
  2. CYCLOPHOSPHAMIDE [Suspect]
     Active Substance: CYCLOPHOSPHAMIDE
     Indication: Neoplasm malignant
  3. SODIUM CHLORIDE [Suspect]
     Active Substance: SODIUM CHLORIDE
     Indication: Medication dilution
     Dosage: (0.9%) 500 ML, ONE TIME IN ONE DAY, USED TO DILUTE 1.4 G OF CYCLOPHOSPHAMIDE, MULTIPLE CYCLES OF CHE
     Route: 041
     Dates: start: 20240930, end: 20240930
  4. SODIUM CHLORIDE [Suspect]
     Active Substance: SODIUM CHLORIDE
     Dosage: (0.9%) 100 ML, ONE TIME IN ONE DAY, USED TO DILUTE 2 MG OF VINCRISTINE SULFATE, MULTIPLE CYCLES OF C
     Route: 041
     Dates: start: 20240930, end: 20240930
  5. DOXORUBICIN HYDROCHLORIDE [Suspect]
     Active Substance: DOXORUBICIN HYDROCHLORIDE
     Indication: Rhabdomyosarcoma
     Dosage: 60 MG, ONE TIME IN ONE DAY, DILUTED WITH 250 ML OF 5% GLUCOSE, MULTIPLE CYCLES OF CHEMOTHERAPY
     Route: 041
     Dates: start: 20240930, end: 20240930
  6. DOXORUBICIN HYDROCHLORIDE [Suspect]
     Active Substance: DOXORUBICIN HYDROCHLORIDE
     Indication: Neoplasm malignant
  7. VINCRISTINE SULFATE [Suspect]
     Active Substance: VINCRISTINE SULFATE
     Indication: Rhabdomyosarcoma
     Dosage: 2 MG, ONE TIME IN ONE DAY, DILUTED WITH 100 ML OF 0.9% SODIUM CHLORIDE, MULTIPLE CYCLES OF CHEMOTHER
     Route: 041
     Dates: start: 20240930, end: 20240930
  8. VINCRISTINE SULFATE [Suspect]
     Active Substance: VINCRISTINE SULFATE
     Indication: Neoplasm malignant
  9. DEXTROSE [Suspect]
     Active Substance: DEXTROSE MONOHYDRATE
     Indication: Medication dilution
     Dosage: 250 ML, ONE TIME IN ONE DAY, USED TO DILUTE 60 MG OF DOXORUBICIN HYDROCHLORIDE LIPOSOME, MULTIPLE CY
     Route: 041
     Dates: start: 20240930, end: 20240930

REACTIONS (8)
  - Myelosuppression [Recovering/Resolving]
  - Pyrexia [Recovered/Resolved]
  - Mouth ulceration [Recovered/Resolved]
  - Oral discomfort [Unknown]
  - Oral pain [Unknown]
  - Oropharyngeal swelling [Recovering/Resolving]
  - Laryngeal discomfort [Unknown]
  - Laryngeal pain [Unknown]

NARRATIVE: CASE EVENT DATE: 20241001
